FAERS Safety Report 5606403-1 (Version None)
Quarter: 2008Q1

REPORT INFORMATION
  Report Type: 
  Country: None (occurrence: None)
  Receive Date: 20080129
  Receipt Date: 20070925
  Transmission Date: 20080703
  Serious: No
  Sender: FDA-Public Use
  Company Number: A0683918A

PATIENT
  Age: 35 Year
  Sex: Male

DRUGS (2)
  1. WELLBUTRIN [Suspect]
     Indication: ANXIETY
     Dosage: 300MG PER DAY
     Route: 048
     Dates: start: 20070101
  2. VYTORIN [Concomitant]

REACTIONS (3)
  - DIZZINESS [None]
  - HYPOAESTHESIA [None]
  - TREMOR [None]
